FAERS Safety Report 24952608 (Version 1)
Quarter: 2025Q1

REPORT INFORMATION
  Report Type: Spontaneous
  Country: US (occurrence: US)
  Receive Date: 20250210
  Receipt Date: 20250210
  Transmission Date: 20250408
  Serious: Yes (Hospitalization)
  Sender: BIOGEN
  Company Number: US-BIOGEN-2024BI01289750

PATIENT
  Sex: Female

DRUGS (17)
  1. VUMERITY [Suspect]
     Active Substance: DIROXIMEL FUMARATE
     Indication: Multiple sclerosis
     Dosage: TAKE 2 CAPSULES BY MOUTH TWICE A DAY,
     Route: 050
     Dates: start: 20210818, end: 20241226
  2. VUMERITY [Suspect]
     Active Substance: DIROXIMEL FUMARATE
     Dosage: TAKE 2 CAPSULES BY MOUTH TWICE A DAY, LAST DOSE 26-DEC-2024
     Route: 050
     Dates: start: 202501
  3. VITAMIN D [Concomitant]
     Active Substance: VITAMIN D NOS
     Indication: Product used for unknown indication
     Route: 050
  4. FOLIC ACID [Concomitant]
     Active Substance: FOLIC ACID
     Indication: Product used for unknown indication
     Route: 050
  5. ASPIRIN 81 LOW DOSE [Concomitant]
     Indication: Product used for unknown indication
     Route: 050
  6. ROSUVASTATIN CALCIUM [Concomitant]
     Active Substance: ROSUVASTATIN CALCIUM
     Indication: Product used for unknown indication
     Route: 050
  7. TOLTERODINE TARTRATE [Concomitant]
     Active Substance: TOLTERODINE TARTRATE
     Indication: Product used for unknown indication
     Route: 050
  8. SINGULAIR [Concomitant]
     Active Substance: MONTELUKAST SODIUM
     Indication: Product used for unknown indication
     Route: 050
  9. CONCERTA [Concomitant]
     Active Substance: METHYLPHENIDATE HYDROCHLORIDE
     Indication: Product used for unknown indication
     Route: 050
  10. PANTOPRAZOLE SODIUM [Concomitant]
     Active Substance: PANTOPRAZOLE SODIUM
     Indication: Product used for unknown indication
     Route: 050
  11. CELEBREX [Concomitant]
     Active Substance: CELECOXIB
     Indication: Product used for unknown indication
     Route: 050
  12. HYDROCHLOROTHIAZIDE\LOSARTAN POTASSIUM [Concomitant]
     Active Substance: HYDROCHLOROTHIAZIDE\LOSARTAN POTASSIUM
     Indication: Product used for unknown indication
     Route: 050
  13. FLONASE [Concomitant]
     Active Substance: FLUTICASONE PROPIONATE
     Indication: Product used for unknown indication
     Route: 050
  14. PROZAC [Concomitant]
     Active Substance: FLUOXETINE HYDROCHLORIDE
     Indication: Product used for unknown indication
     Route: 050
  15. ANAPROX DS [Concomitant]
     Active Substance: NAPROXEN SODIUM
     Indication: Product used for unknown indication
     Route: 050
  16. ZYRTEC [Concomitant]
     Active Substance: CETIRIZINE HYDROCHLORIDE
     Indication: Product used for unknown indication
     Route: 050
  17. TRAMADOL HCL [Concomitant]
     Active Substance: TRAMADOL HYDROCHLORIDE
     Indication: Product used for unknown indication
     Route: 050

REACTIONS (3)
  - Osteoarthritis [Unknown]
  - Muscle spasms [Unknown]
  - Fall [Recovered/Resolved]
